FAERS Safety Report 16478348 (Version 1)
Quarter: 2019Q2

REPORT INFORMATION
  Report Type: Spontaneous
  Country: JP (occurrence: JP)
  Receive Date: 20190626
  Receipt Date: 20190626
  Transmission Date: 20190711
  Serious: Yes (Other)
  Sender: FDA-Public Use
  Company Number: JP-PFIZER INC-2019268082

PATIENT
  Age: 55 Year
  Sex: Female

DRUGS (2)
  1. BROTIZOLAM [Suspect]
     Active Substance: BROTIZOLAM
     Indication: MENTAL DISORDER
     Dosage: UNK
     Route: 048
  2. LYRICA [Suspect]
     Active Substance: PREGABALIN
     Indication: NEURALGIA
     Dosage: 150 MG, 2X/DAY

REACTIONS (2)
  - Loss of consciousness [Unknown]
  - Orthostatic hypotension [Unknown]
